FAERS Safety Report 8264652-0 (Version None)
Quarter: 2012Q2

REPORT INFORMATION
  Report Type: 
  Country: None (occurrence: None)
  Receive Date: 20120403
  Receipt Date: 20120323
  Transmission Date: 20120825
  Serious: Yes (Hospitalization, Other)
  Sender: FDA-Public Use
  Company Number: AUR-APL-2012-01626

PATIENT
  Age: 54 Year
  Sex: Female

DRUGS (3)
  1. SIMVASTATIN [Concomitant]
  2. METFORMIN HCL [Suspect]
     Indication: PRODUCT USED FOR UNKNOWN INDICATION
     Dosage: 2000 MG (1000 MG, 2 IN 1 D)
  3. LISINOPRIL [Suspect]
     Indication: PRODUCT USED FOR UNKNOWN INDICATION
     Dosage: 5 MG, 1 D)

REACTIONS (14)
  - TOXICITY TO VARIOUS AGENTS [None]
  - HYPOVOLAEMIA [None]
  - LACTIC ACIDOSIS [None]
  - CULTURE URINE POSITIVE [None]
  - RESPIRATORY FAILURE [None]
  - HYPOTHERMIA [None]
  - RENAL FAILURE ACUTE [None]
  - MULTI-ORGAN FAILURE [None]
  - URINARY TRACT INFECTION [None]
  - ESCHERICHIA INFECTION [None]
  - SHOCK [None]
  - SYNCOPE [None]
  - BLOOD GLUCOSE DECREASED [None]
  - RESPIRATORY DISTRESS [None]
